FAERS Safety Report 21534637 (Version 1)
Quarter: 2022Q4

REPORT INFORMATION
  Report Type: Spontaneous
  Country: US (occurrence: US)
  Receive Date: 20221101
  Receipt Date: 20221101
  Transmission Date: 20230113
  Serious: No
  Sender: FDA-Public Use
  Company Number: US-MIGRATION_PFIZER-2022BHV001671

PATIENT

DRUGS (2)
  1. NURTEC ODT [Suspect]
     Active Substance: RIMEGEPANT SULFATE
     Indication: Migraine
     Dosage: TOOK IT FOR THE 1ST TIME YESTERDAY / TODAY I HAD ANOTHER ATTACK TOOK 1 NURTEC IN THE MORNING
     Route: 065
     Dates: start: 20220619
  2. IMETRIX [Concomitant]
     Indication: Migraine
     Route: 065

REACTIONS (1)
  - Drug ineffective [Unknown]

NARRATIVE: CASE EVENT DATE: 20220619
